FAERS Safety Report 5309358-2 (Version None)
Quarter: 2007Q2

REPORT INFORMATION
  Report Type: 
  Country: None (occurrence: None)
  Receive Date: 20070427
  Receipt Date: 20070424
  Transmission Date: 20071010
  Serious: Yes (Death)
  Sender: FDA-Public Use
  Company Number: US-BRACCO-BDI-009414

PATIENT
  Sex: Male

DRUGS (5)
  1. ISOVUE-300 [Suspect]
     Route: 037
     Dates: start: 20070410, end: 20070410
  2. ISOVUE-300 [Suspect]
     Route: 037
     Dates: start: 20070410, end: 20070410
  3. METFORMIN [Concomitant]
     Route: 050
  4. GLYBURIDE [Concomitant]
     Route: 050
  5. ACTOS [Concomitant]
     Route: 050

REACTIONS (1)
  - PULMONARY EMBOLISM [None]
